FAERS Safety Report 9088101 (Version 1)
Quarter: 2013Q1

REPORT INFORMATION
  Report Type: Spontaneous
  Country: PR (occurrence: PR)
  Receive Date: 20130201
  Receipt Date: 20130201
  Transmission Date: 20140127
  Serious: No
  Sender: FDA-Public Use
  Company Number: PR-ABBOTT-12P-131-1001798-00

PATIENT
  Sex: Female

DRUGS (8)
  1. HUMIRA [Suspect]
     Indication: RHEUMATOID ARTHRITIS
     Route: 058
     Dates: start: 20120614
  2. SYNTHROID [Concomitant]
     Indication: HYPOTHYROIDISM
     Route: 048
  3. FOLIC ACID [Concomitant]
     Indication: THALASSAEMIA BETA
     Route: 048
  4. PRILOSEC [Concomitant]
     Indication: GASTRITIS
     Dosage: AS NEEDED
     Route: 048
  5. PROTONIX [Concomitant]
     Indication: GASTRITIS
     Dosage: AS NEEDED
     Route: 048
  6. HYDROTHIAZIDE [Concomitant]
     Indication: HYPERTENSION
     Route: 048
  7. ATACAND [Concomitant]
     Indication: HYPERTENSION
     Route: 048
  8. METHOTREXATE [Concomitant]
     Indication: RHEUMATOID ARTHRITIS
     Dosage: 15 MGS ONCE A WEEK
     Route: 048

REACTIONS (2)
  - Urinary tract infection [Recovered/Resolved]
  - Urinary tract infection [Unknown]
